FAERS Safety Report 10201269 (Version 3)
Quarter: 2014Q2

REPORT INFORMATION
  Report Type: Report from Study
  Country: JP (occurrence: JP)
  Receive Date: 20140528
  Receipt Date: 20140620
  Transmission Date: 20141212
  Serious: Yes (Hospitalization)
  Sender: FDA-Public Use
  Company Number: JP-ABBVIE-11P-087-0857769-00

PATIENT
  Age: 22 Year
  Sex: Male
  Weight: 50 kg

DRUGS (16)
  1. HUMIRA 40 MG/ 0.8 ML PRE-FILLED SYRINGE [Suspect]
     Indication: CROHN^S DISEASE
     Route: 058
     Dates: start: 20101028, end: 20101028
  2. HUMIRA 40 MG/ 0.8 ML PRE-FILLED SYRINGE [Suspect]
     Dates: start: 20101111, end: 20101111
  3. HUMIRA 40 MG/ 0.8 ML PRE-FILLED SYRINGE [Suspect]
     Dates: start: 20101125, end: 20110120
  4. HUMIRA 40 MG/ 0.8 ML PRE-FILLED SYRINGE [Suspect]
     Dates: start: 20110127, end: 20110203
  5. HUMIRA 40 MG/ 0.8 ML PRE-FILLED SYRINGE [Suspect]
     Dates: start: 20110316
  6. IMURAN [Suspect]
     Indication: CROHN^S DISEASE
     Route: 048
     Dates: end: 20110212
  7. PREDONINE [Suspect]
     Indication: CROHN^S DISEASE
     Dates: start: 20110121
  8. PREDONINE [Suspect]
     Dates: start: 20110204
  9. PREDONINE [Suspect]
     Dates: start: 20110211
  10. PREDONINE [Suspect]
     Dates: start: 20110216
  11. PREDONINE [Suspect]
     Dates: start: 20110301
  12. PREDONINE [Suspect]
     Dates: start: 20110314
  13. LOPERAMIDE HYDROCHLORIDE [Concomitant]
     Indication: CROHN^S DISEASE
     Route: 048
     Dates: start: 20110107, end: 20110205
  14. FOLIC ACID [Concomitant]
     Indication: PRODUCT USED FOR UNKNOWN INDICATION
     Route: 048
  15. FAMOTIDINE [Concomitant]
     Indication: GASTROINTESTINAL DISORDER
     Route: 048
  16. SULFAMETHOXAZOLE W/TRIMETHOPRIM [Concomitant]
     Indication: INFECTION PROPHYLAXIS
     Route: 048
     Dates: start: 20110201, end: 20110220

REACTIONS (7)
  - Herpes zoster [Recovered/Resolved]
  - Crohn^s disease [Recovered/Resolved]
  - Anaemia [Recovered/Resolved]
  - Back pain [Unknown]
  - Dermatitis bullous [Unknown]
  - Varicella [Recovered/Resolved]
  - Pain [Unknown]
